FAERS Safety Report 5907525-8 (Version None)
Quarter: 2008Q4

REPORT INFORMATION
  Report Type: 
  Country: None (occurrence: None)
  Receive Date: 20081003
  Receipt Date: 20080926
  Transmission Date: 20090506
  Serious: Yes (Hospitalization, Other)
  Sender: FDA-Public Use
  Company Number: GB-JNJFOC-20080905999

PATIENT
  Sex: Male
  Weight: 108 kg

DRUGS (8)
  1. REMICADE [Suspect]
     Indication: RHEUMATOID ARTHRITIS
     Route: 042
  2. METHOTREXATE [Concomitant]
  3. PREDNISOLONE [Concomitant]
  4. ASPIRIN [Concomitant]
  5. BENDROFLUAZIDE [Concomitant]
  6. FOLIC ACID [Concomitant]
  7. LACTULOSE [Concomitant]
  8. ACETAMINOPHEN [Concomitant]

REACTIONS (3)
  - AORTIC ANEURYSM RUPTURE [None]
  - CARDIAC ARREST [None]
  - POST PROCEDURAL PNEUMONIA [None]
